FAERS Safety Report 6582517-7 (Version None)
Quarter: 2010Q1

REPORT INFORMATION
  Report Type: 
  Country: None (occurrence: None)
  Receive Date: 20100212
  Receipt Date: 20100212
  Transmission Date: 20100710
  Serious: Yes (Disabling)
  Sender: FDA-Public Use
  Company Number: None

PATIENT
  Age: 85 Year
  Sex: Male
  Weight: 75.8 kg

DRUGS (1)
  1. HALOPERIDOL [Suspect]
     Indication: AGITATION
     Dosage: 1 MG AT BEDTIME PO
     Route: 048
     Dates: start: 20100118, end: 20100122

REACTIONS (7)
  - AGITATION [None]
  - CONDITION AGGRAVATED [None]
  - DRUG HYPERSENSITIVITY [None]
  - POSTURE ABNORMAL [None]
  - TARDIVE DYSKINESIA [None]
  - TORTICOLLIS [None]
  - TREMOR [None]
